FAERS Safety Report 16457724 (Version 1)
Quarter: 2019Q2

REPORT INFORMATION
  Report Type: Spontaneous
  Country: US (occurrence: US)
  Receive Date: 20190620
  Receipt Date: 20190620
  Transmission Date: 20190711
  Serious: Yes (Other)
  Sender: FDA-Public Use
  Company Number: US-PFIZER INC-2019261194

PATIENT
  Age: 85 Year
  Sex: Female
  Weight: 68.4 kg

DRUGS (1)
  1. CELEBREX [Suspect]
     Active Substance: CELECOXIB
     Indication: ARTHRITIS
     Dosage: 200 MG, TWICE DAILY

REACTIONS (3)
  - Cerebrovascular accident [Unknown]
  - Arthralgia [Unknown]
  - Back disorder [Unknown]

NARRATIVE: CASE EVENT DATE: 201707
